FAERS Safety Report 4324616-6 (Version None)
Quarter: 2004Q1

REPORT INFORMATION
  Report Type: 
  Country: None (occurrence: None)
  Receive Date: 20040323
  Receipt Date: 20040127
  Transmission Date: 20041129
  Serious: Yes (Hospitalization)
  Sender: FDA-Public Use
  Company Number: 22985(1)

PATIENT
  Age: 67 Year
  Sex: Female

DRUGS (5)
  1. THEOLAIR [Suspect]
     Indication: ASTHMA
     Dosage: 400 MG (200 MG, 2 IN 1 DAY(S); ORAL
     Route: 048
     Dates: start: 20000101
  2. ARAVA [Suspect]
     Indication: POLYMYALGIA RHEUMATICA
     Dosage: (1 IN 1 DAY(S);
     Dates: start: 20031004, end: 20031015
  3. CORVO (ENALAPRIL MALEATE) [Suspect]
     Indication: HYPERTENSION
     Dosage: (1 IN 1 DAY(S)
     Dates: start: 20000101
  4. TOREM (TORASEMIDE) [Suspect]
     Indication: HYPERTENSION
     Dosage: (1 IN 1 DAY(S)
     Dates: start: 20000101
  5. VIOXX [Suspect]
     Indication: POLYMYALGIA RHEUMATICA
     Dosage: (2 IN 1 DAY(S)
     Dates: start: 20020101

REACTIONS (5)
  - DECREASED APPETITE [None]
  - DRUG INTERACTION [None]
  - NAUSEA [None]
  - POLYMYALGIA RHEUMATICA [None]
  - VOMITING [None]
